FAERS Safety Report 7966116-8 (Version None)
Quarter: 2011Q4

REPORT INFORMATION
  Report Type: 
  Country: None (occurrence: None)
  Receive Date: 20111208
  Receipt Date: 20111205
  Transmission Date: 20120403
  Serious: Yes (Hospitalization)
  Sender: FDA-Public Use
  Company Number: PHHO2011US020373

PATIENT
  Age: 60 Year
  Sex: Male
  Weight: 109.8 kg

DRUGS (4)
  1. BLINDED PLACEBO [Suspect]
     Indication: ACUTE MYELOID LEUKAEMIA
     Dosage: DOUBLE BLINDED
     Route: 048
     Dates: start: 20100827, end: 20111115
  2. BLINDED NO TREATMENT RECEIVED [Suspect]
     Indication: ACUTE MYELOID LEUKAEMIA
     Dosage: DOUBLE BLINDED
     Route: 048
     Dates: start: 20100827, end: 20111115
  3. PREDNISONE TAB [Suspect]
     Indication: THROMBOCYTOPENIA
     Dosage: 80 MG, UNK
     Dates: start: 20111116
  4. BLINDED CGP 41251 [Suspect]
     Indication: ACUTE MYELOID LEUKAEMIA
     Dosage: DOUBLE BLINDED
     Route: 048
     Dates: start: 20100827, end: 20111115

REACTIONS (4)
  - DEHYDRATION [None]
  - SYNCOPE [None]
  - HYPERGLYCAEMIA [None]
  - THROMBOCYTOPENIA [None]
